FAERS Safety Report 17811033 (Version 4)
Quarter: 2020Q3

REPORT INFORMATION
  Report Type: Spontaneous
  Country: US (occurrence: US)
  Receive Date: 20200521
  Receipt Date: 20200731
  Transmission Date: 20201102
  Serious: Yes (Disabling)
  Sender: FDA-Public Use
  Company Number: NVSC2020US134482

PATIENT
  Age: 77 Year
  Sex: Female
  Weight: 68.04 kg

DRUGS (3)
  1. BEOVU [Suspect]
     Active Substance: BROLUCIZUMAB-DBLL
     Dosage: 0.05 ML
     Route: 047
     Dates: end: 20200506
  2. BEOVU [Suspect]
     Active Substance: BROLUCIZUMAB-DBLL
     Dosage: 0.05 ML
     Route: 047
  3. BEOVU [Suspect]
     Active Substance: BROLUCIZUMAB-DBLL
     Indication: AGE-RELATED MACULAR DEGENERATION
     Dosage: 0.05 ML (EVERY 8 WEEKS FOLLOWING 3 MONTHLY LOADING DOSES)
     Route: 047
     Dates: start: 20200108

REACTIONS (3)
  - Blindness unilateral [Not Recovered/Not Resolved]
  - Retinal artery occlusion [Not Recovered/Not Resolved]
  - Retinal vasculitis [Not Recovered/Not Resolved]

NARRATIVE: CASE EVENT DATE: 20200503
